FAERS Safety Report 6174745-X (Version None)
Quarter: 2009Q2

REPORT INFORMATION
  Report Type: 
  Country: None (occurrence: None)
  Receive Date: 20090430
  Receipt Date: 20081006
  Transmission Date: 20091009
  Serious: No
  Sender: FDA-Public Use
  Company Number: US-ASTRAZENECA-2008UW18639

PATIENT
  Age: 47 Year
  Sex: Female
  Weight: 97.5 kg

DRUGS (2)
  1. NEXIUM [Suspect]
     Route: 048
  2. PROZAC [Concomitant]
     Route: 048

REACTIONS (1)
  - ABDOMINAL DISCOMFORT [None]
